FAERS Safety Report 6878158-4 (Version None)
Quarter: 2010Q2

REPORT INFORMATION
  Report Type: 
  Country: None (occurrence: None)
  Receive Date: 20100623
  Receipt Date: 20081222
  Transmission Date: 20101027
  Serious: No
  Sender: FDA-Public Use
  Company Number: 2008-00153

PATIENT
  Age: 42 Year
  Sex: Male
  Weight: 70.3075 kg

DRUGS (2)
  1. ZICAM COLD REMEDY NASAL GEL [Suspect]
     Indication: NASOPHARYNGITIS
     Dosage: Q 4 HOURS X 3 DAYS
     Dates: start: 20081215, end: 20081218
  2. VITAMINS [Concomitant]

REACTIONS (2)
  - AGEUSIA [None]
  - ANOSMIA [None]
